FAERS Safety Report 4407154-1 (Version None)
Quarter: 2004Q3

REPORT INFORMATION
  Report Type: 
  Country: None (occurrence: None)
  Receive Date: 20040723
  Receipt Date: 20040723
  Transmission Date: 20050211
  Serious: Yes (Life-Threatening, Hospitalization)
  Sender: FDA-Public Use
  Company Number: None

PATIENT
  Age: 76 Year
  Sex: Female
  Weight: 73.9 kg

DRUGS (10)
  1. WARFARIN SODIUM [Suspect]
  2. COUMADIN [Concomitant]
  3. ARTIFICIAL TEARS [Concomitant]
  4. DOXEPIN HCL [Concomitant]
  5. LORAZEPAM [Concomitant]
  6. QUININE SULFATE [Concomitant]
  7. ALBUTEROL SOLN (PREMIX) [Concomitant]
  8. QUININE SULFATE [Concomitant]
  9. LEVOTHYROXINE SODIUM [Concomitant]
  10. IPRATROPIUM BROMIDE [Concomitant]

REACTIONS (1)
  - HAEMORRHAGE [None]
